FAERS Safety Report 6670541-5 (Version None)
Quarter: 2010Q2

REPORT INFORMATION
  Report Type: 
  Country: None (occurrence: None)
  Receive Date: 20100407
  Receipt Date: 20100330
  Transmission Date: 20101027
  Serious: No
  Sender: FDA-Public Use
  Company Number: US-BIOGENIDEC-2010BI010885

PATIENT
  Age: 24 Year
  Sex: Female

DRUGS (2)
  1. TYSABRI [Suspect]
     Indication: MULTIPLE SCLEROSIS
     Route: 042
     Dates: start: 20080428, end: 20080725
  2. TYSABRI [Suspect]
     Route: 042
     Dates: start: 20090807

REACTIONS (4)
  - DIZZINESS [None]
  - HEADACHE [None]
  - MUSCLE SPASTICITY [None]
  - MUSCLE TWITCHING [None]
